FAERS Safety Report 13018595 (Version 3)
Quarter: 2017Q1

REPORT INFORMATION
  Report Type: Spontaneous
  Country: US (occurrence: US)
  Receive Date: 20161212
  Receipt Date: 20170119
  Transmission Date: 20170428
  Serious: Yes (Death, Hospitalization)
  Sender: FDA-Public Use
  Company Number: US-INSYS THERAPEUTICS, INC-INS201611-000757

PATIENT
  Age: 76 Year
  Sex: Female

DRUGS (35)
  1. COMPAZINE [Concomitant]
     Active Substance: PROCHLORPERAZINE MALEATE
     Dates: start: 20161124, end: 20161128
  2. MYCOSTATIN [Concomitant]
     Active Substance: NYSTATIN
     Dates: start: 20161124, end: 20161128
  3. FLEXERIL [Concomitant]
     Active Substance: CYCLOBENZAPRINE HYDROCHLORIDE
     Indication: MUSCLE SPASMS
     Dates: start: 20161128
  4. DUONEB [Concomitant]
     Active Substance: ALBUTEROL SULFATE\IPRATROPIUM BROMIDE
     Indication: COUGH
     Dates: start: 20161119
  5. SUBSYS [Suspect]
     Active Substance: FENTANYL
     Indication: MUSCLE SPASMS
     Route: 060
     Dates: start: 20161121, end: 20161128
  6. HALDOL [Concomitant]
     Active Substance: HALOPERIDOL
     Indication: AGITATION
     Dates: start: 20161126, end: 20161128
  7. PERICOLACE [Concomitant]
     Dates: start: 20161124
  8. TRANSDERM SCOP [Concomitant]
     Active Substance: SCOPOLAMINE
     Dates: start: 20161127, end: 20161128
  9. ATIVAN [Concomitant]
     Active Substance: LORAZEPAM
     Indication: DELIRIUM
     Dates: start: 20161127, end: 20161128
  10. ROBINUL [Concomitant]
     Active Substance: GLYCOPYRROLATE
     Dates: start: 20161124
  11. DULCOLAX NOS [Concomitant]
     Active Substance: BISACODYL OR DOCUSATE SODIUM
     Dates: start: 20161124, end: 20161128
  12. DEMEROL [Concomitant]
     Active Substance: MEPERIDINE HYDROCHLORIDE
     Indication: PAIN
     Dates: start: 20161111
  13. LOPRESSOR [Concomitant]
     Active Substance: METOPROLOL TARTRATE
     Dates: start: 20161028
  14. HALDOL [Concomitant]
     Active Substance: HALOPERIDOL
     Indication: PSYCHOTIC DISORDER
     Dates: start: 20161126, end: 20161126
  15. LASIX [Concomitant]
     Active Substance: FUROSEMIDE
     Dates: start: 20161125
  16. NORVASC [Concomitant]
     Active Substance: AMLODIPINE BESYLATE
     Dates: start: 20161124, end: 20161128
  17. APRESOLINE HYDROCHLORIDE [Concomitant]
     Active Substance: HYDRALAZINE HYDROCHLORIDE
     Dates: start: 20161028
  18. ZOFRAN ODT [Concomitant]
     Active Substance: ONDANSETRON HYDROCHLORIDE
     Indication: NAUSEA
     Dates: start: 20151113
  19. ZITHROMAX [Concomitant]
     Active Substance: AZITHROMYCIN DIHYDRATE
     Dates: start: 20161123, end: 20161128
  20. HALDOL [Concomitant]
     Active Substance: HALOPERIDOL
     Indication: DELIRIUM
  21. PROVENTIL VENTOLIN [Concomitant]
     Dates: start: 20161124, end: 20161128
  22. CATAPRES [Concomitant]
     Active Substance: CLONIDINE HYDROCHLORIDE
     Indication: BLOOD PRESSURE MEASUREMENT
     Dates: start: 20161126, end: 20161128
  23. COLACE [Concomitant]
     Active Substance: DOCUSATE SODIUM
     Dates: start: 20161028
  24. DUONEB [Concomitant]
     Active Substance: ALBUTEROL SULFATE\IPRATROPIUM BROMIDE
     Indication: BRONCHOSPASM
  25. CLARITIN [Concomitant]
     Active Substance: LORATADINE
     Dates: start: 20161126, end: 20161128
  26. DELTASONE [Concomitant]
     Active Substance: PREDNISONE
     Indication: PAIN
     Dates: start: 20161111
  27. SUBSYS [Suspect]
     Active Substance: FENTANYL
     Indication: PAIN
     Dates: start: 20161031, end: 20161125
  28. FENTANYL CITRATE. [Concomitant]
     Active Substance: FENTANYL CITRATE
     Indication: PAIN
     Dates: start: 20161125, end: 20161128
  29. SYNTHROID [Concomitant]
     Active Substance: LEVOTHYROXINE SODIUM
     Dates: start: 20160509
  30. PHENERGAN [Concomitant]
     Active Substance: PROMETHAZINE HYDROCHLORIDE
     Indication: NAUSEA
  31. SENOKOT [Concomitant]
     Active Substance: SENNOSIDES
     Dates: start: 20161124
  32. VALIUM [Concomitant]
     Active Substance: DIAZEPAM
     Indication: MUSCLE SPASMS
  33. SODIUM CHLORIDE. [Concomitant]
     Active Substance: SODIUM CHLORIDE
     Dates: start: 20151119
  34. TYLENOL [Concomitant]
     Active Substance: ACETAMINOPHEN
     Dates: start: 20161124, end: 20161128
  35. EPOGEN [Concomitant]
     Active Substance: ERYTHROPOIETIN

REACTIONS (2)
  - Death [Fatal]
  - Renal failure [Unknown]

NARRATIVE: CASE EVENT DATE: 20161124
